FAERS Safety Report 16991739 (Version 1)
Quarter: 2019Q4

REPORT INFORMATION
  Report Type: Spontaneous
  Country: DE (occurrence: DE)
  Receive Date: 20191104
  Receipt Date: 20191104
  Transmission Date: 20200122
  Serious: Yes (Other)
  Sender: FDA-Public Use
  Company Number: DE-ASTRAZENECA-2019SF55508

PATIENT
  Sex: Female

DRUGS (1)
  1. NEXIUM MUPS [Suspect]
     Active Substance: ESOMEPRAZOLE
     Route: 048

REACTIONS (2)
  - Gastrooesophageal reflux disease [Unknown]
  - Mucosal disorder [Unknown]
